FAERS Safety Report 15009842 (Version 1)
Quarter: 2018Q2

REPORT INFORMATION
  Report Type: Spontaneous
  Country: US (occurrence: US)
  Receive Date: 20180527
  Receipt Date: 20180527
  Transmission Date: 20180711
  Serious: Yes (Other)
  Sender: FDA-Public Use
  Company Number: None

PATIENT
  Age: 67 Year
  Sex: Female
  Weight: 68.85 kg

DRUGS (18)
  1. ISOSORBIDE MONO ER [Concomitant]
  2. MULTIVITAMIN WOMEN OVER 50 [Concomitant]
  3. VITAMIN-12/METHYLCOBALAMIN [Concomitant]
  4. FERROUS FUMERATE [Concomitant]
     Active Substance: FERROUS FUMARATE
  5. AMLODEPINE [Concomitant]
  6. ESOMEPRAZOLE [Concomitant]
     Active Substance: ESOMEPRAZOLE
  7. LUTEIN W ZANTHEIUM [Concomitant]
  8. CONJUGATED ESTROGEN CREAM [Concomitant]
  9. ^RESTFUL LEGS^ [Concomitant]
  10. ALOEVERA LIQUID [Concomitant]
  11. DOXAZOSIN MESYLATE 1 MG [Suspect]
     Active Substance: DOXAZOSIN MESYLATE
     Indication: HYPERTENSION
     Dosage: ?          QUANTITY:1 TABLET(S);?
     Route: 048
     Dates: start: 20180209, end: 20180525
  12. MEGA-RED [Concomitant]
     Active Substance: DIETARY SUPPLEMENT
  13. MAGNESIUM [Concomitant]
     Active Substance: MAGNESIUM
  14. CALCIUM CITRATE W VITAMIN D3 [Concomitant]
  15. VITAMIN D3 [Concomitant]
     Active Substance: CHOLECALCIFEROL
  16. ROSUVASTATIN. [Concomitant]
     Active Substance: ROSUVASTATIN
  17. ZYRTEC [Concomitant]
     Active Substance: CETIRIZINE HYDROCHLORIDE
  18. D-MANNOSE W CRANACTIN [Concomitant]

REACTIONS (1)
  - Retinal tear [None]

NARRATIVE: CASE EVENT DATE: 20180412
